FAERS Safety Report 5205618-4 (Version None)
Quarter: 2007Q1

REPORT INFORMATION
  Report Type: 
  Country: None (occurrence: None)
  Receive Date: 20070111
  Receipt Date: 20070108
  Transmission Date: 20070707
  Serious: Yes (Hospitalization)
  Sender: FDA-Public Use
  Company Number: US-ELI_LILLY_AND_COMPANY-US200612000225

PATIENT
  Age: 23 Year
  Sex: Male

DRUGS (2)
  1. CIALIS [Suspect]
     Dosage: 60 MG, UNK
     Dates: start: 20061128
  2. MEGA MEN /CAN/ [Concomitant]

REACTIONS (5)
  - ACCIDENTAL OVERDOSE [None]
  - INCORRECT DOSE ADMINISTERED [None]
  - MIGRAINE [None]
  - PHARMACEUTICAL PRODUCT COMPLAINT [None]
  - RECTAL HAEMORRHAGE [None]
